FAERS Safety Report 9682959 (Version 1)
Quarter: 2013Q4

REPORT INFORMATION
  Report Type: Spontaneous
  Country: US (occurrence: None)
  Receive Date: 20131111
  Receipt Date: 20131111
  Transmission Date: 20140711
  Serious: No
  Sender: FDA-Public Use
  Company Number: None

PATIENT
  Age: 76 Year
  Sex: Female
  Weight: 68.04 kg

DRUGS (1)
  1. ATENOLOL 25 MG TABLET [Suspect]
     Route: 048
     Dates: start: 20131014, end: 20131108

REACTIONS (4)
  - Blood pressure increased [None]
  - Headache [None]
  - Product substitution issue [None]
  - Product lot number issue [None]
